FAERS Safety Report 9857820 (Version 2)
Quarter: 2016Q3

REPORT INFORMATION
  Report Type: Spontaneous
  Country: ES (occurrence: ES)
  Receive Date: 20140131
  Receipt Date: 20160714
  Transmission Date: 20161109
  Serious: Yes (Other)
  Sender: FDA-Public Use
  Company Number: ES-BRISTOL-MYERS SQUIBB COMPANY-20104576

PATIENT
  Age: 28 Year
  Sex: Male

DRUGS (3)
  1. ARIPIPRAZOLE. [Suspect]
     Active Substance: ARIPIPRAZOLE
     Indication: EATING DISORDER SYMPTOM
     Dosage: 10 MG, UNK
     Route: 065
  2. FLUOXETINE [Interacting]
     Active Substance: FLUOXETINE HYDROCHLORIDE
     Indication: EATING DISORDER SYMPTOM
     Dosage: 40 MG, QD
     Route: 065
  3. TOPIRAMATE. [Concomitant]
     Active Substance: TOPIRAMATE
     Indication: EATING DISORDER SYMPTOM
     Dosage: 150 MG, UNK
     Route: 065

REACTIONS (3)
  - Ventricular arrhythmia [Unknown]
  - Off label use [Unknown]
  - Drug interaction [Unknown]
